FAERS Safety Report 26087329 (Version 1)
Quarter: 2025Q4

REPORT INFORMATION
  Report Type: Spontaneous
  Country: US (occurrence: US)
  Receive Date: 20251125
  Receipt Date: 20251125
  Transmission Date: 20260117
  Serious: No
  Sender: EMD SERONO INC
  Company Number: US-Merck Healthcare KGaA-2025058982

PATIENT
  Age: 70 Year
  Sex: Female

DRUGS (1)
  1. MAVENCLAD [Suspect]
     Active Substance: CLADRIBINE
     Indication: Multiple sclerosis
     Dosage: FIRST YEAR FIRST MONTH THERAPY, 2 TABLETS ON DAY 1 AND ONE TABLET FROM DAY 2 TO 5
     Dates: start: 20251110, end: 20251114

REACTIONS (2)
  - Headache [Recovered/Resolved]
  - Fatigue [Recovered/Resolved]

NARRATIVE: CASE EVENT DATE: 20251110
